FAERS Safety Report 16300795 (Version 2)
Quarter: 2021Q1

REPORT INFORMATION
  Report Type: Spontaneous
  Country: US (occurrence: US)
  Receive Date: 20190510
  Receipt Date: 20210205
  Transmission Date: 20210419
  Serious: Yes (Other)
  Sender: FDA-Public Use
  Company Number: US-ASTRAZENECA-2019SE67568

PATIENT
  Sex: Male
  Weight: 100.2 kg

DRUGS (61)
  1. PRAVASTATIN SODIUM. [Concomitant]
     Active Substance: PRAVASTATIN SODIUM
  2. SULFAMETHOXAZOLE/ TMP [Concomitant]
  3. TAMSULOSIN [Concomitant]
     Active Substance: TAMSULOSIN
  4. FERRITIN [Concomitant]
     Active Substance: FERRITIN
  5. NEXIUM [Suspect]
     Active Substance: ESOMEPRAZOLE MAGNESIUM
     Indication: GASTROOESOPHAGEAL REFLUX DISEASE
     Dosage: 20?40 TWICE A DAY
     Route: 048
     Dates: start: 20151014, end: 20160315
  6. NEXIUM [Suspect]
     Active Substance: ESOMEPRAZOLE MAGNESIUM
     Indication: GASTROOESOPHAGEAL REFLUX DISEASE
     Dosage: GENERIC
     Route: 065
     Dates: start: 20151030, end: 20170522
  7. NEXIUM 24HR [Suspect]
     Active Substance: ESOMEPRAZOLE MAGNESIUM
     Indication: GASTROOESOPHAGEAL REFLUX DISEASE
     Route: 048
     Dates: start: 20150909
  8. PRILOSEC OTC [Suspect]
     Active Substance: OMEPRAZOLE MAGNESIUM
     Route: 048
  9. FINASTERIDE. [Concomitant]
     Active Substance: FINASTERIDE
     Indication: URINARY RETENTION
  10. FUROSEMIDE. [Concomitant]
     Active Substance: FUROSEMIDE
     Indication: POLYURIA
  11. RANITIDINE. [Concomitant]
     Active Substance: RANITIDINE
  12. VIAGRA [Concomitant]
     Active Substance: SILDENAFIL CITRATE
  13. AMBIEN [Concomitant]
     Active Substance: ZOLPIDEM TARTRATE
  14. HEPARIN [Concomitant]
     Active Substance: HEPARIN SODIUM
  15. ASPIRIN. [Concomitant]
     Active Substance: ASPIRIN
  16. NITROGLYCERIN. [Concomitant]
     Active Substance: NITROGLYCERIN
  17. LOPERAMIDE [Concomitant]
     Active Substance: LOPERAMIDE
  18. AMOXICILLIN. [Concomitant]
     Active Substance: AMOXICILLIN
  19. PREVACID [Suspect]
     Active Substance: LANSOPRAZOLE
     Indication: GASTROOESOPHAGEAL REFLUX DISEASE
     Route: 065
     Dates: start: 1995, end: 2014
  20. AMOX TR?K CLV [Concomitant]
     Active Substance: AMOXICILLIN\CLAVULANATE POTASSIUM
  21. HYDROCODONE?ACETAMINOPHEN [Concomitant]
     Active Substance: ACETAMINOPHEN\HYDROCODONE
  22. CIALIS [Concomitant]
     Active Substance: TADALAFIL
  23. PHENERGAN [Concomitant]
     Active Substance: PROMETHAZINE HYDROCHLORIDE
  24. CALCITRIOL. [Concomitant]
     Active Substance: CALCITRIOL
  25. PRILOSEC [Suspect]
     Active Substance: OMEPRAZOLE MAGNESIUM
     Route: 048
  26. MIRALAX [Concomitant]
     Active Substance: POLYETHYLENE GLYCOL 3350
  27. VITAMIN D [Concomitant]
     Active Substance: VITAMIN D NOS
  28. PROTONIX [Suspect]
     Active Substance: PANTOPRAZOLE SODIUM
     Indication: GASTROOESOPHAGEAL REFLUX DISEASE
     Route: 065
     Dates: start: 20151212, end: 20160111
  29. CARVEDILOL. [Concomitant]
     Active Substance: CARVEDILOL
     Indication: BETA GLOBIN ABNORMAL
  30. GLIPIZIDE. [Concomitant]
     Active Substance: GLIPIZIDE
     Indication: DIABETES MELLITUS
  31. CLONAZEPAM. [Concomitant]
     Active Substance: CLONAZEPAM
  32. COMBIVENT [Concomitant]
     Active Substance: ALBUTEROL SULFATE\IPRATROPIUM BROMIDE
  33. OXYCODONE HYDROCHLORIDE. [Concomitant]
     Active Substance: OXYCODONE HYDROCHLORIDE
  34. LEVAQUIN [Concomitant]
     Active Substance: LEVOFLOXACIN
  35. FLOMAX [Concomitant]
     Active Substance: TAMSULOSIN HYDROCHLORIDE
  36. PROTHROMBIN [Concomitant]
     Active Substance: PROTHROMBIN
  37. EPOGEN [Concomitant]
     Active Substance: ERYTHROPOIETIN
  38. GLUCOSE [Concomitant]
     Active Substance: DEXTROSE
  39. OXYCODONE?ACETAMINOPHEN [Concomitant]
     Active Substance: ACETAMINOPHEN\OXYCODONE HYDROCHLORIDE
  40. CELEXA [Concomitant]
     Active Substance: CITALOPRAM HYDROBROMIDE
  41. MAGNESIUM OXIDE. [Concomitant]
     Active Substance: MAGNESIUM OXIDE
  42. FENTANYL. [Concomitant]
     Active Substance: FENTANYL
  43. VANCOMYCIN [Concomitant]
     Active Substance: VANCOMYCIN
  44. VENOFER [Concomitant]
     Active Substance: IRON SUCROSE
  45. PREVACID 24 HR [Suspect]
     Active Substance: LANSOPRAZOLE
     Indication: GASTROOESOPHAGEAL REFLUX DISEASE
     Route: 065
     Dates: start: 1995, end: 2014
  46. METOLAZONE. [Concomitant]
     Active Substance: METOLAZONE
     Indication: POLYURIA
  47. ROLAIDS [Concomitant]
     Active Substance: CALCIUM CARBONATE\MAGNESIUM HYDROXIDE
  48. COLOSTAZOL [Concomitant]
  49. COUMADIN [Concomitant]
     Active Substance: WARFARIN SODIUM
  50. QUIN [Concomitant]
  51. SPIRONOLACTONE. [Concomitant]
     Active Substance: SPIRONOLACTONE
  52. ARANESP [Concomitant]
     Active Substance: DARBEPOETIN ALFA
  53. GENTAMICIN. [Concomitant]
     Active Substance: GENTAMICIN
  54. CENTRUM SILVER [Concomitant]
     Active Substance: MINERALS\VITAMINS
     Indication: HYPOVITAMINOSIS
  55. POTASSIUM CHLORIDE. [Concomitant]
     Active Substance: POTASSIUM CHLORIDE
  56. CIPROFLOXACIN. [Concomitant]
     Active Substance: CIPROFLOXACIN
  57. CALCIUM ACETATE. [Concomitant]
     Active Substance: CALCIUM ACETATE
  58. FLONASE [Concomitant]
     Active Substance: FLUTICASONE PROPIONATE
  59. XANAX [Concomitant]
     Active Substance: ALPRAZOLAM
  60. HUMALOG [Concomitant]
     Active Substance: INSULIN LISPRO
  61. KEFLEX [Concomitant]
     Active Substance: CEPHALEXIN

REACTIONS (5)
  - Gastrooesophageal reflux disease [Not Recovered/Not Resolved]
  - Chronic kidney disease [Not Recovered/Not Resolved]
  - End stage renal disease [Not Recovered/Not Resolved]
  - Renal failure [Unknown]
  - Acute kidney injury [Not Recovered/Not Resolved]
